FAERS Safety Report 12964945 (Version 2)
Quarter: 2017Q1

REPORT INFORMATION
  Report Type: Spontaneous
  Country: US (occurrence: US)
  Receive Date: 20161122
  Receipt Date: 20170216
  Transmission Date: 20170428
  Serious: No
  Sender: FDA-Public Use
  Company Number: US-ALLERGAN-1671597US

PATIENT
  Age: 50 Year
  Sex: Female

DRUGS (1)
  1. KYBELLA [Suspect]
     Active Substance: DEOXYCHOLIC ACID
     Indication: PRODUCT USED FOR UNKNOWN INDICATION
     Dosage: UNK
     Route: 058
     Dates: start: 20161007

REACTIONS (11)
  - Gingival recession [Not Recovered/Not Resolved]
  - Inflammation [Unknown]
  - Facial pain [Recovering/Resolving]
  - Glossodynia [Recovering/Resolving]
  - Swelling [Recovering/Resolving]
  - Chemical injury [Unknown]
  - Sensation of foreign body [Recovered/Resolved]
  - Injection site pain [Recovering/Resolving]
  - Tooth discolouration [Not Recovered/Not Resolved]
  - Pain in jaw [Recovering/Resolving]
  - Contusion [Unknown]
